FAERS Safety Report 8390470-9 (Version None)
Quarter: 2012Q2

REPORT INFORMATION
  Report Type: 
  Country: None (occurrence: None)
  Receive Date: 20120522
  Receipt Date: 20120511
  Transmission Date: 20120825
  Serious: Yes (Life-Threatening, Hospitalization)
  Sender: FDA-Public Use
  Company Number: DSA_57111_2012

PATIENT
  Age: 23 Year
  Sex: Male

DRUGS (3)
  1. CITALOPRAM HYDROBROMIDE [Suspect]
     Indication: PRODUCT USED FOR UNKNOWN INDICATION
     Dosage: (FREQUENCY  UNSPECIFIED)
  2. AMOXICILLIN [Suspect]
     Indication: PERICORONITIS
     Dosage: (200 MG TID)
  3. METRONIDAZOLE [Suspect]
     Indication: PERICORONITIS
     Dosage: (250 MG TID)

REACTIONS (1)
  - ANAPHYLACTIC SHOCK [None]
